FAERS Safety Report 4695765-8 (Version None)
Quarter: 2005Q2

REPORT INFORMATION
  Report Type: 
  Country: None (occurrence: None)
  Receive Date: 20050621
  Receipt Date: 20050614
  Transmission Date: 20051028
  Serious: Yes (Hospitalization)
  Sender: FDA-Public Use
  Company Number: FR-BRISTOL-MYERS SQUIBB COMPANY-13005962

PATIENT
  Age: 69 Year
  Sex: Male

DRUGS (9)
  1. UFT [Suspect]
     Indication: RECTAL CANCER
     Route: 048
     Dates: start: 20050130, end: 20050221
  2. RADIOTHERAPY [Suspect]
     Indication: RECTAL CANCER
     Dosage: DOSE: GRAY
     Dates: start: 20050131, end: 20050221
  3. FOLINIC ACID [Suspect]
     Indication: RECTAL CANCER
     Route: 048
     Dates: start: 20050130, end: 20050221
  4. ZOCOR [Concomitant]
  5. PLAVIX [Concomitant]
  6. STILNOX [Concomitant]
  7. ECAZIDE [Concomitant]
  8. PIASCLEDINE [Concomitant]
  9. DI-ACTANE [Concomitant]

REACTIONS (3)
  - DEHYDRATION [None]
  - DIARRHOEA [None]
  - PNEUMOPERITONEUM [None]
